FAERS Safety Report 7745727-9 (Version None)
Quarter: 2011Q3

REPORT INFORMATION
  Report Type: 
  Country: None (occurrence: None)
  Receive Date: 20110913
  Receipt Date: 20110831
  Transmission Date: 20111222
  Serious: Yes (Hospitalization)
  Sender: FDA-Public Use
  Company Number: FR-KINGPHARMUSA00001-K201101014

PATIENT
  Sex: Female

DRUGS (9)
  1. ANTITHROMBOTIC AGENTS [Concomitant]
  2. BETA BLOCKING AGENTS [Concomitant]
  3. ORGANIC NITRATES [Concomitant]
  4. ALTACE [Suspect]
     Route: 048
  5. INVESTIGATIONAL DRUG [Concomitant]
     Indication: TYPE 2 DIABETES MELLITUS
     Dosage: UNK
     Route: 048
     Dates: start: 20101110
  6. CALCIUM CHANNEL BLOCKERS [Concomitant]
  7. POTASSIUM [Suspect]
     Route: 065
  8. AMARYL [Concomitant]
     Dosage: 1 MG, UNK
     Route: 048
     Dates: start: 20101116
  9. HMG COA REDUCTASE INHIBITORS [Concomitant]

REACTIONS (6)
  - PULMONARY CONGESTION [None]
  - BRADYARRHYTHMIA [None]
  - CHEST PAIN [None]
  - HYPERKALAEMIA [None]
  - DIZZINESS POSTURAL [None]
  - CARDIOMEGALY [None]
